FAERS Safety Report 5862732-8 (Version None)
Quarter: 2008Q3

REPORT INFORMATION
  Report Type: 
  Country: None (occurrence: None)
  Receive Date: 20080828
  Receipt Date: 20080820
  Transmission Date: 20090109
  Serious: Yes (Other)
  Sender: FDA-Public Use
  Company Number: US-ABBOTT-08P-163-0471833-00

PATIENT
  Age: 10 Year
  Sex: Female

DRUGS (14)
  1. ADALIMUMAB [Suspect]
     Indication: JUVENILE ARTHRITIS
  2. INFLIXIMAB [Suspect]
     Indication: JUVENILE ARTHRITIS
     Route: 042
  3. INFLIXIMAB [Suspect]
     Route: 042
  4. INFLIXIMAB [Suspect]
     Route: 042
  5. LEFLUNOMIDE [Suspect]
     Indication: JUVENILE ARTHRITIS
     Dosage: NOT REPORTED
  6. KINERET [Suspect]
     Indication: JUVENILE ARTHRITIS
     Dosage: NOT REPORTED
  7. CYCLOPHOSPHAMIDE [Suspect]
     Indication: JUVENILE ARTHRITIS
     Route: 042
  8. THALIDOMIDE [Suspect]
     Indication: JUVENILE ARTHRITIS
     Dosage: NOT REPORTED
  9. RITUXIMAB [Suspect]
     Indication: JUVENILE ARTHRITIS
  10. METHOTREXATE SODIUM [Suspect]
     Indication: JUVENILE ARTHRITIS
  11. PREDNISONE TAB [Suspect]
     Indication: JUVENILE ARTHRITIS
     Dosage: UNSPECIFIED LOW DOSE
  12. ETANERCEPT [Suspect]
     Indication: JUVENILE ARTHRITIS
     Dosage: NOT REPORTED
  13. NAPROXEN SODIUM [Concomitant]
     Indication: DRUG USE FOR UNKNOWN INDICATION
     Dosage: NOT REPORTED
  14. METHADONE HCL [Concomitant]
     Indication: DRUG USE FOR UNKNOWN INDICATION
     Dosage: NOT REPORTED

REACTIONS (2)
  - ANAPHYLACTIC REACTION [None]
  - HODGKIN'S DISEASE [None]
